FAERS Safety Report 7772691-9 (Version None)
Quarter: 2011Q3

REPORT INFORMATION
  Report Type: 
  Country: None (occurrence: None)
  Receive Date: 20110922
  Receipt Date: 20100412
  Transmission Date: 20111222
  Serious: No
  Sender: FDA-Public Use
  Company Number: US-ASTRAZENECA-2009SE12589

PATIENT
  Age: 16650 Day
  Sex: Female

DRUGS (3)
  1. LIPITOR [Concomitant]
     Dates: start: 20060215
  2. WELLBUTRIN [Concomitant]
     Dates: start: 20060215
  3. SEROQUEL [Suspect]
     Dosage: TITRATE TO 200 MG
     Route: 048
     Dates: start: 20060215

REACTIONS (3)
  - TYPE 1 DIABETES MELLITUS [None]
  - SPEECH DISORDER [None]
  - DIABETES MELLITUS [None]
